FAERS Safety Report 6980517-6 (Version None)
Quarter: 2010Q3

REPORT INFORMATION
  Report Type: 
  Country: None (occurrence: None)
  Receive Date: 20100914
  Receipt Date: 20100901
  Transmission Date: 20110219
  Serious: Yes (Other)
  Sender: FDA-Public Use
  Company Number: PHHY2010FR58388

PATIENT
  Age: 80 Year
  Sex: Female

DRUGS (9)
  1. TEGRETOL [Suspect]
     Dosage: 400 MG, QD
     Route: 048
     Dates: start: 20100814
  2. TOPIRAMATE [Suspect]
     Dosage: 150 MG, UNK
  3. AMLODIPINE [Suspect]
     Dosage: UNK
  4. TAREG [Concomitant]
     Dosage: 40 MG, UNK
  5. KARDEGIC [Concomitant]
     Dosage: UNK
  6. STAGID [Concomitant]
     Dosage: UNK
  7. FLECAINIDE ACETATE [Concomitant]
     Dosage: UNK
  8. CRESTOR [Concomitant]
     Dosage: UNK
  9. LODOZ [Concomitant]
     Dosage: UNK

REACTIONS (4)
  - DIZZINESS [None]
  - DRUG ADMINISTRATION ERROR [None]
  - MALAISE [None]
  - SOMNOLENCE [None]
